FAERS Safety Report 25675868 (Version 1)
Quarter: 2025Q3

REPORT INFORMATION
  Report Type: Spontaneous
  Country: CH (occurrence: CH)
  Receive Date: 20250813
  Receipt Date: 20250813
  Transmission Date: 20251020
  Serious: Yes (Hospitalization)
  Sender: CHEPLAPHARM
  Company Number: None

PATIENT
  Age: 46 Year
  Sex: Male

DRUGS (5)
  1. CLONAZEPAM [Interacting]
     Active Substance: CLONAZEPAM
     Dosage: FOR SEVERAL YEARS?DAILY DOSE: 6 MILLIGRAM
  2. MIDAZOLAM [Interacting]
     Active Substance: MIDAZOLAM
     Dosage: FOR SEVERAL YEARS?DAILY DOSE: 60 MILLIGRAM
  3. METHADONE [Interacting]
     Active Substance: METHADONE HYDROCHLORIDE
     Dates: start: 20250705, end: 20250705
  4. RITALIN [Concomitant]
     Active Substance: METHYLPHENIDATE HYDROCHLORIDE
     Dosage: DAILY DOSE: 40 MILLIGRAM
  5. PALIPERIDONE PALMITATE [Concomitant]
     Active Substance: PALIPERIDONE PALMITATE

REACTIONS (8)
  - Altered state of consciousness [Recovered/Resolved]
  - Hypotension [Recovered/Resolved]
  - Bradypnoea [Recovered/Resolved]
  - Respiratory acidosis [Recovered/Resolved]
  - Septic shock [Recovered/Resolved]
  - Pneumonia aspiration [Recovered/Resolved]
  - Acute kidney injury [Recovered/Resolved]
  - Drug interaction [Unknown]

NARRATIVE: CASE EVENT DATE: 20250705
